FAERS Safety Report 24828255 (Version 1)
Quarter: 2025Q1

REPORT INFORMATION
  Report Type: Report from Study
  Country: BR (occurrence: BR)
  Receive Date: 20250109
  Receipt Date: 20250109
  Transmission Date: 20250408
  Serious: Yes (Hospitalization)
  Sender: NOVARTIS
  Company Number: BR-002147023-NVSC2025BR002365

PATIENT
  Sex: Female

DRUGS (2)
  1. DIOVAN HCT [Suspect]
     Active Substance: HYDROCHLOROTHIAZIDE\VALSARTAN
     Indication: Product used for unknown indication
     Route: 065
  2. DIOVAN [Suspect]
     Active Substance: VALSARTAN
     Indication: Product used for unknown indication
     Route: 065

REACTIONS (3)
  - Blood sodium decreased [Recovered/Resolved]
  - Arthralgia [Unknown]
  - Osteoarthritis [Unknown]
